FAERS Safety Report 25187923 (Version 2)
Quarter: 2025Q2

REPORT INFORMATION
  Report Type: Spontaneous
  Country: MA (occurrence: MA)
  Receive Date: 20250411
  Receipt Date: 20250422
  Transmission Date: 20250717
  Serious: Yes (Life-Threatening, Hospitalization)
  Sender: ACCORD
  Company Number: MA-MLMSERVICE-20250326-PI457982-00043-1

PATIENT
  Age: 54 Year
  Sex: Male

DRUGS (1)
  1. ALLOPURINOL [Suspect]
     Active Substance: ALLOPURINOL
     Indication: Hyperuricaemia

REACTIONS (5)
  - Drug reaction with eosinophilia and systemic symptoms [Recovering/Resolving]
  - Renal failure [Recovering/Resolving]
  - Pancreatitis [Recovering/Resolving]
  - Ascites [Recovering/Resolving]
  - Hepatic enzyme increased [Recovered/Resolved]
